FAERS Safety Report 4576341-4 (Version None)
Quarter: 2005Q1

REPORT INFORMATION
  Report Type: 
  Country: None (occurrence: None)
  Receive Date: 20050207
  Receipt Date: 20050121
  Transmission Date: 20050727
  Serious: Yes (Hospitalization)
  Sender: FDA-Public Use
  Company Number: 9900

PATIENT
  Age: 76 Year
  Sex: Female

DRUGS (3)
  1. METHOTREXATE [Suspect]
     Indication: SERONEGATIVE ARTHRITIS
     Dosage: 15 MG WEEKLY
  2. PREDNISOLONE [Concomitant]
  3. IDOMETHACIN [Concomitant]

REACTIONS (5)
  - ACUTE RESPIRATORY FAILURE [None]
  - BRONCHOPULMONARY ASPERGILLOSIS [None]
  - LYMPHOCYTE COUNT INCREASED [None]
  - PNEUMOCYSTIS JIROVECI INFECTION [None]
  - WHITE BLOOD CELL COUNT INCREASED [None]
